FAERS Safety Report 10225081 (Version 1)
Quarter: 2014Q2

REPORT INFORMATION
  Report Type: Spontaneous
  Country: SE (occurrence: SE)
  Receive Date: 20140609
  Receipt Date: 20140609
  Transmission Date: 20141212
  Serious: Yes (Other)
  Sender: FDA-Public Use
  Company Number: SE-WATSON-2013-25435

PATIENT
  Age: 65 Year
  Sex: Female

DRUGS (1)
  1. OMEPRAZOL ACTAVIS [Suspect]
     Indication: OESOPHAGITIS
     Route: 065
     Dates: start: 20130207

REACTIONS (5)
  - Condition aggravated [Unknown]
  - Non-cardiac chest pain [Unknown]
  - Dyspnoea [Unknown]
  - Swelling [Unknown]
  - Neck pain [Unknown]
